FAERS Safety Report 6297229-7 (Version None)
Quarter: 2009Q3

REPORT INFORMATION
  Report Type: 
  Country: None (occurrence: None)
  Receive Date: 20090805
  Receipt Date: 20080326
  Transmission Date: 20100115
  Serious: Yes (Other)
  Sender: FDA-Public Use
  Company Number: US-ASTRAZENECA-2007UW24131

PATIENT
  Age: 36 Year
  Sex: Female
  Weight: 117.9 kg

DRUGS (6)
  1. SEROQUEL [Suspect]
     Indication: DEPRESSION
     Route: 048
     Dates: start: 20010101, end: 20020101
  2. ACTOS [Concomitant]
     Dates: start: 20061024
  3. SYNTHROID [Concomitant]
     Dosage: 50 - 200 MCG
     Route: 048
     Dates: start: 19971022
  4. LISINOPRIL [Concomitant]
     Dosage: 5 - 20 MG
     Route: 048
     Dates: start: 20061026
  5. ASPIRIN [Concomitant]
     Route: 048
     Dates: start: 20061024
  6. COUMADIN [Concomitant]
     Dosage: 3 - 5 MG
     Dates: start: 20061208

REACTIONS (9)
  - BLOOD CHOLESTEROL INCREASED [None]
  - BLOOD TRIGLYCERIDES INCREASED [None]
  - DEPRESSION [None]
  - DIABETES MELLITUS [None]
  - DIABETIC RETINOPATHY [None]
  - MAJOR DEPRESSION [None]
  - OBESITY [None]
  - TYPE 1 DIABETES MELLITUS [None]
  - TYPE 2 DIABETES MELLITUS [None]
